FAERS Safety Report 16957390 (Version 3)
Quarter: 2019Q4

REPORT INFORMATION
  Report Type: Other
  Country: JP (occurrence: JP)
  Receive Date: 20191024
  Receipt Date: 20191219
  Transmission Date: 20200122
  Serious: Yes (Life-Threatening, Hospitalization)
  Sender: FDA-Public Use
  Company Number: JP-EMD SERONO-9123597

PATIENT
  Age: 29 Year
  Sex: Female

DRUGS (4)
  1. HUMAN CHORIONIC GONADOTROPIN [Suspect]
     Active Substance: GONADOTROPHIN, CHORIONIC
     Indication: OVULATION INDUCTION
     Dosage: 10000 UNITS OF HUMAN CHORIONIC GONADOTROPIN (HCG) WAS ADMINISTERED ON 20TH DAY
     Route: 030
     Dates: start: 20181205, end: 20181205
  2. GONAL-F RFF [Suspect]
     Active Substance: FOLLITROPIN
     Indication: INFERTILITY FEMALE
     Dosage: 200 IU FOR 3 TIMES AND 150 IU FOR 14 TIMES
     Route: 058
     Dates: start: 20181119, end: 20181205
  3. GANIREST [Concomitant]
     Active Substance: GANIRELIX ACETATE
     Indication: PREVENTION OF PREMATURE OVULATION
     Route: 058
     Dates: start: 20181125, end: 20181204
  4. FEMARA [Concomitant]
     Active Substance: LETROZOLE
     Indication: CONTROLLED OVARIAN STIMULATION
     Route: 048
     Dates: start: 2018

REACTIONS (6)
  - Anaemia [Recovered/Resolved]
  - Shock [Recovered/Resolved]
  - Pneumothorax [Recovered/Resolved]
  - Acute kidney injury [Recovered/Resolved]
  - Ovarian hyperstimulation syndrome [Recovered/Resolved]
  - Right ventricular failure [Recovered/Resolved]

NARRATIVE: CASE EVENT DATE: 201812
